FAERS Safety Report 10343399 (Version 1)
Quarter: 2014Q3

REPORT INFORMATION
  Report Type: Spontaneous
  Country: CN (occurrence: None)
  Receive Date: 20140723
  Receipt Date: 20140723
  Transmission Date: 20150326
  Serious: Yes (Hospitalization)
  Sender: FDA-Public Use
  Company Number: 2014AMD00042

PATIENT
  Age: 61 Year
  Sex: Male

DRUGS (1)
  1. ZENTEL (ALBENDAZOLE) TABLET [Suspect]
     Active Substance: ALBENDAZOLE
     Indication: ASCARIASIS
     Dosage: 2 TABLETS, 1X/DAY
     Route: 048
     Dates: start: 20140222, end: 20140222

REACTIONS (4)
  - Fatigue [None]
  - Diarrhoea [None]
  - Discomfort [None]
  - Vomiting [None]

NARRATIVE: CASE EVENT DATE: 20140222
